FAERS Safety Report 25537797 (Version 1)
Quarter: 2025Q3

REPORT INFORMATION
  Report Type: Report from Study
  Country: EU (occurrence: EU)
  Receive Date: 20250710
  Receipt Date: 20250710
  Transmission Date: 20251021
  Serious: Yes (Other)
  Sender: AUROBINDO
  Company Number: EU-HIKMA PHARMACEUTICALS USA INC.-IT-H14001-25-07698

PATIENT
  Age: 14 Month
  Sex: Female

DRUGS (2)
  1. GEMCITABINE [Suspect]
     Active Substance: GEMCITABINE
     Indication: Choroid plexus carcinoma
     Route: 065
  2. OXALIPLATIN [Suspect]
     Active Substance: OXALIPLATIN
     Indication: Choroid plexus carcinoma
     Route: 065

REACTIONS (2)
  - Disease progression [Unknown]
  - Therapeutic product effect incomplete [Unknown]
